FAERS Safety Report 6545230-8 (Version None)
Quarter: 2010Q1

REPORT INFORMATION
  Report Type: 
  Country: None (occurrence: None)
  Receive Date: 20100121
  Receipt Date: 20090707
  Transmission Date: 20100710
  Serious: No
  Sender: FDA-Public Use
  Company Number: US-KINGPHARMUSA00001-K200900812

PATIENT
  Sex: Female

DRUGS (7)
  1. EPIPEN [Suspect]
     Indication: ALLERGY TO ARTHROPOD STING
     Dosage: 0.3 MG, TWICE
     Route: 030
  2. EPIPEN [Suspect]
     Indication: HYPERSENSITIVITY
  3. CYMBALTA [Concomitant]
     Dosage: 60 MG, QD
  4. GABAPENTIN [Concomitant]
     Dosage: 600 MG, TID
  5. TRAZODONE [Concomitant]
     Dosage: 150 MG, QHS
  6. FLEXERIL [Concomitant]
     Dosage: 10 MG, TID
  7. HYDROCODONE [Concomitant]
     Dosage: 10 MG, Q 6 HRS

REACTIONS (1)
  - DRUG INEFFECTIVE [None]
